FAERS Safety Report 7419316-X (Version None)
Quarter: 2011Q2

REPORT INFORMATION
  Report Type: 
  Country: None (occurrence: None)
  Receive Date: 20110415
  Receipt Date: 20110414
  Transmission Date: 20111010
  Serious: Yes (Other)
  Sender: FDA-Public Use
  Company Number: FR-ABBOTT-11P-056-0718997-00

PATIENT
  Age: 9 Year
  Sex: Female

DRUGS (4)
  1. MICROPAKINE L.P. PROLONGED RELEASE GRANULES [Suspect]
     Route: 048
     Dates: start: 20100201, end: 20100201
  2. MICROPAKINE L.P. PROLONGED RELEASE GRANULES [Suspect]
     Route: 048
     Dates: start: 20100301, end: 20110329
  3. MICROPAKINE L.P. PROLONGED RELEASE GRANULES [Suspect]
     Indication: EPILEPSY
     Route: 048
     Dates: start: 20090415, end: 20100113
  4. MICROPAKINE L.P. PROLONGED RELEASE GRANULES [Suspect]
     Route: 048
     Dates: start: 20100114, end: 20100201

REACTIONS (6)
  - APATHY [None]
  - ABDOMINAL PAIN [None]
  - URINARY INCONTINENCE [None]
  - HALLUCINATION [None]
  - VITAMIN B12 DEFICIENCY [None]
  - ALOPECIA [None]
